FAERS Safety Report 5928322-3 (Version None)
Quarter: 2008Q4

REPORT INFORMATION
  Report Type: 
  Country: None (occurrence: None)
  Receive Date: 20081023
  Receipt Date: 20080923
  Transmission Date: 20090506
  Serious: Yes (Death)
  Sender: FDA-Public Use
  Company Number: US-BAXTER-2008BH010374

PATIENT
  Age: 11 Year
  Sex: Female
  Weight: 41 kg

DRUGS (8)
  1. MORPHINE SULFATE INJ [Suspect]
     Indication: PREMEDICATION
     Route: 030
     Dates: start: 20080911, end: 20080911
  2. MORPHINE SULFATE INJ [Suspect]
     Indication: OFF LABEL USE
     Route: 030
     Dates: start: 20080911, end: 20080911
  3. ATROPINE [Concomitant]
     Indication: PREMEDICATION
     Route: 030
     Dates: start: 20080911, end: 20080911
  4. PROPOFOL [Concomitant]
     Indication: INDUCTION OF ANAESTHESIA
     Route: 042
     Dates: start: 20080911, end: 20080911
  5. CERENIA [Concomitant]
     Indication: ANTIEMETIC SUPPORTIVE CARE
     Route: 058
     Dates: start: 20080909, end: 20080909
  6. METRONIDAZOLE [Concomitant]
     Indication: ANTIBIOTIC THERAPY
     Route: 048
     Dates: start: 20080909, end: 20080911
  7. CEFAZOLIN [Concomitant]
     Indication: ANTIBIOTIC THERAPY
     Route: 042
     Dates: start: 20080909, end: 20080910
  8. CEPHALEXIN [Concomitant]
     Indication: ANTIBIOTIC THERAPY
     Route: 048
     Dates: start: 20080910, end: 20080911

REACTIONS (13)
  - ANOREXIA [None]
  - BLOOD ALKALINE PHOSPHATASE INCREASED [None]
  - EUTHANASIA [None]
  - HYPERVENTILATION [None]
  - LETHARGY [None]
  - LIVER DISORDER [None]
  - MULTI-ORGAN FAILURE [None]
  - NEUTROPHIL COUNT INCREASED [None]
  - OFF LABEL USE [None]
  - PYREXIA [None]
  - SEDATION [None]
  - VOMITING [None]
  - WHITE BLOOD CELL COUNT INCREASED [None]
